FAERS Safety Report 4832564-8 (Version None)
Quarter: 2005Q4

REPORT INFORMATION
  Report Type: 
  Country: None (occurrence: None)
  Receive Date: 20051121
  Receipt Date: 20051114
  Transmission Date: 20060501
  Serious: Yes (Death, Other)
  Sender: FDA-Public Use
  Company Number: US-BRISTOL-MYERS SQUIBB COMPANY-13188206

PATIENT
  Age: 54 Year
  Sex: Male

DRUGS (3)
  1. CYCLOPHOSPHAMIDE [Suspect]
     Indication: LEUKAEMIA PLASMACYTIC
  2. CISPLATIN [Suspect]
     Indication: LEUKAEMIA PLASMACYTIC
  3. DEXAMETHASONE [Suspect]
     Indication: LEUKAEMIA PLASMACYTIC

REACTIONS (2)
  - METASTASES TO SKIN [None]
  - SEPSIS [None]
